FAERS Safety Report 7898093-2 (Version None)
Quarter: 2011Q4

REPORT INFORMATION
  Report Type: 
  Country: None (occurrence: None)
  Receive Date: 20111103
  Receipt Date: 20111018
  Transmission Date: 20120403
  Serious: Yes (Hospitalization)
  Sender: FDA-Public Use
  Company Number: RISP20110007

PATIENT
  Age: 22 Year
  Sex: Female
  Weight: 159 kg

DRUGS (2)
  1. RISPERIDONE TABLETS 1MG (RISPERIDONE) (1 MILLIGRAM_ [Suspect]
     Indication: PRODUCT USED FOR UNKNOWN INDICATION
     Dosage: 1 MG, 1 IN 1 D, ORAL
     Route: 048
  2. SERTRALINE (SERTRALINE) (100 MILLIGRAM) (SERTRALINE) [Concomitant]

REACTIONS (4)
  - RETINAL VASCULAR DISORDER [None]
  - VITH NERVE PARALYSIS [None]
  - WEIGHT INCREASED [None]
  - BENIGN INTRACRANIAL HYPERTENSION [None]
